FAERS Safety Report 11815234 (Version 1)
Quarter: 2015Q4

REPORT INFORMATION
  Report Type: Spontaneous
  Country: US (occurrence: US)
  Receive Date: 20151209
  Receipt Date: 20151209
  Transmission Date: 20160305
  Serious: No
  Sender: FDA-Public Use
  Company Number: US-SA-2015SA186931

PATIENT

DRUGS (3)
  1. LANTUS [Concomitant]
     Active Substance: INSULIN GLARGINE
     Dosage: DOSE:12 UNIT(S)
  2. TOUJEO [Suspect]
     Active Substance: INSULIN GLARGINE
     Dosage: SPLIT THE DOSE: 6 UNITS IN THE AM AND 2 UNITS IN THE PM DOSE:8 UNIT(S)
     Route: 065
  3. SOLOSTAR [Concomitant]
     Active Substance: DEVICE

REACTIONS (2)
  - Drug administration error [Unknown]
  - Hypoglycaemia [Recovering/Resolving]
